FAERS Safety Report 18865128 (Version 2)
Quarter: 2021Q1

REPORT INFORMATION
  Report Type: Spontaneous
  Country: US (occurrence: US)
  Receive Date: 20210208
  Receipt Date: 20210302
  Transmission Date: 20210420
  Serious: Yes (Other)
  Sender: FDA-Public Use
  Company Number: US-GLAXOSMITHKLINE-US2021GSK032697

PATIENT
  Sex: Male

DRUGS (8)
  1. ZANTAC [Suspect]
     Active Substance: RANITIDINE HYDROCHLORIDE
     Indication: DYSPEPSIA
     Dosage: 75 MG BOTH
     Route: 065
     Dates: start: 199801, end: 200812
  2. RANITIDINE. [Suspect]
     Active Substance: RANITIDINE
     Indication: DYSPEPSIA
     Dosage: 75 MG BOTH
     Route: 065
     Dates: start: 199801, end: 200812
  3. RANITIDINE. [Suspect]
     Active Substance: RANITIDINE
     Indication: DYSPHAGIA
     Dosage: 150 MG, QD
     Route: 065
     Dates: start: 199801, end: 200812
  4. RANITIDINE. [Suspect]
     Active Substance: RANITIDINE
     Indication: DYSPHAGIA
     Dosage: 150 MG, QD
     Route: 065
     Dates: start: 199801, end: 200812
  5. ZANTAC [Suspect]
     Active Substance: RANITIDINE HYDROCHLORIDE
     Indication: DYSPEPSIA
     Dosage: 75 MG BOTH
     Route: 065
     Dates: start: 199801, end: 200812
  6. ZANTAC [Suspect]
     Active Substance: RANITIDINE HYDROCHLORIDE
     Indication: DYSPHAGIA
     Dosage: 150 MG, QD
     Route: 065
     Dates: start: 199801, end: 200812
  7. ZANTAC [Suspect]
     Active Substance: RANITIDINE HYDROCHLORIDE
     Indication: DYSPHAGIA
     Dosage: 150 MG, QD
     Route: 065
     Dates: start: 199801, end: 200812
  8. RANITIDINE. [Suspect]
     Active Substance: RANITIDINE
     Indication: DYSPEPSIA
     Dosage: 75 MG BOTH
     Route: 065
     Dates: start: 199801, end: 200812

REACTIONS (2)
  - Brain neoplasm malignant [Unknown]
  - Oesophageal carcinoma [Unknown]
